FAERS Safety Report 10086084 (Version 2)
Quarter: 2014Q2

REPORT INFORMATION
  Report Type: Spontaneous
  Country: US (occurrence: US)
  Receive Date: 20140418
  Receipt Date: 20140603
  Transmission Date: 20141212
  Serious: No
  Sender: FDA-Public Use
  Company Number: US-ROXANE LABORATORIES, INC.-2014-RO-00605RO

PATIENT
  Sex: Female

DRUGS (6)
  1. FLECAINIDE [Suspect]
     Indication: ATRIAL FIBRILLATION
     Dosage: 200 MG
     Route: 048
  2. GLIMEPIRIDE [Concomitant]
     Route: 065
  3. DIGOXIN [Concomitant]
     Route: 065
  4. XARELTO [Concomitant]
     Route: 065
  5. VITAMINS [Concomitant]
     Route: 065
  6. COENZYME Q10 [Concomitant]
     Route: 065

REACTIONS (4)
  - Throat irritation [Unknown]
  - Oesophagitis [Unknown]
  - Product taste abnormal [Unknown]
  - Product quality issue [Unknown]
